FAERS Safety Report 6596122-X (Version None)
Quarter: 2010Q1

REPORT INFORMATION
  Report Type: 
  Country: None (occurrence: None)
  Receive Date: 20100216
  Receipt Date: 20100202
  Transmission Date: 20100710
  Serious: Yes (Death, Life-Threatening, Hospitalization)
  Sender: FDA-Public Use
  Company Number: 1-21569975

PATIENT
  Age: 23 Year
  Sex: Male
  Weight: 66.8602 kg

DRUGS (4)
  1. COLCRYS [Suspect]
     Indication: INTENTIONAL OVERDOSE
     Dosage: 48 TO 60 MG, ONCE, ORAL
     Route: 048
  2. DOXYCYCLINE HCL [Concomitant]
  3. AN UNSPECIFIED THYROID MEDICATION [Concomitant]
  4. AN UNSPECIFIED HYPOGLYCEMIC MEDICATION [Concomitant]

REACTIONS (26)
  - ALCOHOL USE [None]
  - BLOOD PRESSURE DECREASED [None]
  - BODY TEMPERATURE INCREASED [None]
  - DEHYDRATION [None]
  - DIARRHOEA [None]
  - DISSEMINATED INTRAVASCULAR COAGULATION [None]
  - DRUG TOXICITY [None]
  - EMOTIONAL DISTRESS [None]
  - GASTROINTESTINAL MUCOSAL EXFOLIATION [None]
  - HAEMODIALYSIS [None]
  - HYPERKALAEMIA [None]
  - LEUKOCYTOSIS [None]
  - METABOLIC ACIDOSIS [None]
  - MULTI-ORGAN FAILURE [None]
  - NEUROPATHY PERIPHERAL [None]
  - NEUTROPENIA [None]
  - NO THERAPEUTIC RESPONSE [None]
  - OVERDOSE [None]
  - PANCREATITIS [None]
  - PLEURAL EFFUSION [None]
  - PULMONARY OEDEMA [None]
  - RENAL FAILURE [None]
  - RESPIRATORY FAILURE [None]
  - SELF-MEDICATION [None]
  - SUICIDE ATTEMPT [None]
  - VOMITING [None]
